FAERS Safety Report 5243437-3 (Version None)
Quarter: 2007Q1

REPORT INFORMATION
  Report Type: 
  Country: None (occurrence: None)
  Receive Date: 20070221
  Receipt Date: 20070209
  Transmission Date: 20070707
  Serious: Yes (Death)
  Sender: FDA-Public Use
  Company Number: JP-SANOFI-SYNTHELABO-A01200604142

PATIENT
  Sex: Male
  Weight: 67 kg

DRUGS (9)
  1. AMLODIPINE [Concomitant]
     Route: 048
     Dates: start: 20060224, end: 20060610
  2. MEVALOTIN [Concomitant]
     Route: 048
     Dates: start: 20060224, end: 20060610
  3. CLEANAL [Concomitant]
     Route: 048
     Dates: start: 20060224, end: 20060610
  4. MAGLAX [Concomitant]
     Route: 048
     Dates: start: 20060224, end: 20060610
  5. LAC-B [Concomitant]
     Route: 048
     Dates: start: 20060224, end: 20060610
  6. EXCELASE [Concomitant]
     Route: 048
     Dates: start: 20060224, end: 20060610
  7. LEUCOVORIN CALCIUM [Suspect]
     Route: 042
     Dates: start: 20060419, end: 20060419
  8. FLUOROURACIL [Suspect]
     Dosage: 700 MG IN BOLUS ON DAY 1 THEN 4200 MG AS CONTINUOUS INFUSION ON DAY 1-2
     Route: 042
     Dates: start: 20060419, end: 20060420
  9. OXALIPLATIN [Suspect]
     Indication: LARGE INTESTINE CARCINOMA
     Route: 042
     Dates: start: 20060419, end: 20060419

REACTIONS (2)
  - CARDIO-RESPIRATORY ARREST [None]
  - INTERSTITIAL LUNG DISEASE [None]
